FAERS Safety Report 17106344 (Version 1)
Quarter: 2019Q4

REPORT INFORMATION
  Report Type: Spontaneous
  Country: US (occurrence: US)
  Receive Date: 20191203
  Receipt Date: 20191203
  Transmission Date: 20200122
  Serious: No
  Sender: FDA-Public Use
  Company Number: US-BAUSCH-BL-2019-060491

PATIENT
  Sex: Female

DRUGS (1)
  1. FLUOROURACIL. [Suspect]
     Active Substance: FLUOROURACIL
     Indication: SKIN LESION
     Dosage: SEVERAL YEARS AGO
     Route: 003

REACTIONS (2)
  - Skin ulcer [Recovered/Resolved]
  - Pain [Recovered/Resolved]
